FAERS Safety Report 6836593-4 (Version None)
Quarter: 2010Q3

REPORT INFORMATION
  Report Type: 
  Country: None (occurrence: None)
  Receive Date: 20100713
  Receipt Date: 20100702
  Transmission Date: 20110219
  Serious: Yes (Hospitalization)
  Sender: FDA-Public Use
  Company Number: PHHY2010US30952

PATIENT
  Sex: Female

DRUGS (1)
  1. SANDOSTATIN LAR [Suspect]
     Dosage: 30 MG, UNK
     Route: 030

REACTIONS (5)
  - CARDIAC NEOPLASM UNSPECIFIED [None]
  - CARDIAC OPERATION [None]
  - HEPATIC NEOPLASM [None]
  - LIVER OPERATION [None]
  - WEIGHT INCREASED [None]
